FAERS Safety Report 20551633 (Version 1)
Quarter: 2022Q1

REPORT INFORMATION
  Report Type: Spontaneous
  Country: US (occurrence: US)
  Receive Date: 20220304
  Receipt Date: 20220304
  Transmission Date: 20220423
  Serious: No
  Sender: FDA-Public Use
  Company Number: US-JNJFOC-20220301393

PATIENT
  Age: 58 Year
  Sex: Male

DRUGS (3)
  1. RISPERDAL [Suspect]
     Active Substance: RISPERIDONE
     Indication: Product used for unknown indication
     Route: 065
  2. ENZALUTAMIDE [Interacting]
     Active Substance: ENZALUTAMIDE
     Indication: Prostate cancer
     Route: 048
     Dates: start: 20210917
  3. PREDNISONE [Interacting]
     Active Substance: PREDNISONE
     Indication: Wheezing
     Route: 065

REACTIONS (3)
  - Urinary tract infection [Unknown]
  - Drug interaction [Unknown]
  - Product distribution issue [Unknown]
